FAERS Safety Report 20898101 (Version 3)
Quarter: 2022Q3

REPORT INFORMATION
  Report Type: Report from Study
  Country: GB (occurrence: GB)
  Receive Date: 20220531
  Receipt Date: 20220721
  Transmission Date: 20221027
  Serious: Yes (Hospitalization)
  Sender: FDA-Public Use
  Company Number: GB-JNJFOC-20220441247

PATIENT
  Age: 79 Year
  Sex: Male

DRUGS (2)
  1. IBRUTINIB [Suspect]
     Active Substance: IBRUTINIB
     Indication: Mantle cell lymphoma
     Route: 048
     Dates: start: 20180117
  2. RITUXIMAB [Concomitant]
     Active Substance: RITUXIMAB
     Indication: Mantle cell lymphoma
     Route: 065
     Dates: start: 20180117, end: 20200212

REACTIONS (7)
  - Squamous cell carcinoma [Not Recovered/Not Resolved]
  - Atrial fibrillation [Recovered/Resolved]
  - Haematoma [Recovered/Resolved]
  - Jaw operation [Not Recovered/Not Resolved]
  - Tooth extraction [Not Recovered/Not Resolved]
  - Bone operation [Not Recovered/Not Resolved]
  - Skin graft [Not Recovered/Not Resolved]

NARRATIVE: CASE EVENT DATE: 20220412
